FAERS Safety Report 21196893 (Version 1)
Quarter: 2022Q3

REPORT INFORMATION
  Report Type: Spontaneous
  Country: DE (occurrence: DE)
  Receive Date: 20220810
  Receipt Date: 20220810
  Transmission Date: 20221026
  Serious: No
  Sender: FDA-Public Use
  Company Number: DE-JAZZ-2022-DE-020686

PATIENT
  Age: 65 Year
  Sex: Female

DRUGS (1)
  1. VYXEOS [Suspect]
     Active Substance: CYTARABINE\DAUNORUBICIN
     Indication: Product used for unknown indication
     Dosage: 44 MG/M2 DAUNORUBICIN AND 100 MG/M2 CYTARABINE

REACTIONS (2)
  - Pyrexia [Recovered/Resolved]
  - Drug eruption [Unknown]
